FAERS Safety Report 9259576 (Version 1)
Quarter: 2013Q2

REPORT INFORMATION
  Report Type: Report from Study
  Country: CO (occurrence: CO)
  Receive Date: 20130429
  Receipt Date: 20130429
  Transmission Date: 20140414
  Serious: Yes (Hospitalization)
  Sender: FDA-Public Use
  Company Number: CO-ROCHE-1219272

PATIENT
  Age: 18 Year
  Sex: Female

DRUGS (1)
  1. MIRCERA [Suspect]
     Indication: NEPHROGENIC ANAEMIA
     Route: 058
     Dates: start: 20121203

REACTIONS (3)
  - Appendicitis [Recovered/Resolved]
  - Ovarian cyst [Recovered/Resolved]
  - Intra-abdominal haematoma [Not Recovered/Not Resolved]
